FAERS Safety Report 7265253-3 (Version None)
Quarter: 2011Q1

REPORT INFORMATION
  Report Type: 
  Country: None (occurrence: None)
  Receive Date: 20110131
  Receipt Date: 20110120
  Transmission Date: 20110831
  Serious: Yes (Other)
  Sender: FDA-Public Use
  Company Number: JP-ASTRAZENECA-2011SE03674

PATIENT
  Age: 23 Year
  Sex: Female

DRUGS (2)
  1. OMEPRAL [Suspect]
     Dosage: DOSE UNKNOWN
     Route: 048
  2. GASMOTIN [Suspect]
     Dosage: DOSE UNKNOWN
     Route: 048

REACTIONS (2)
  - JAUNDICE [None]
  - HEPATIC FUNCTION ABNORMAL [None]
